FAERS Safety Report 9440604 (Version 1)
Quarter: 2013Q3

REPORT INFORMATION
  Report Type: Spontaneous
  Country: FR (occurrence: FR)
  Receive Date: 20130805
  Receipt Date: 20130805
  Transmission Date: 20140515
  Serious: Yes (Life-Threatening, Hospitalization, Other)
  Sender: FDA-Public Use
  Company Number: FR-PFIZER INC-2013219458

PATIENT
  Age: 75 Year
  Sex: Female

DRUGS (13)
  1. COOLMETEC [Suspect]
     Indication: HYPERTENSION
     Dosage: 1 DF, 1X/DAY
     Route: 048
     Dates: end: 201301
  2. COOLMETEC [Suspect]
     Dosage: 1 DF, 1X/DAY
     Route: 048
     Dates: start: 201302, end: 201304
  3. ALPRESS [Suspect]
     Indication: HYPERTENSION
     Dosage: UNK
     Route: 048
  4. ALPRESS [Suspect]
     Dosage: 1 DF, UNK
     Route: 048
     Dates: start: 201302, end: 2013
  5. SPASFON [Concomitant]
     Indication: ABDOMINAL PAIN
     Dosage: 2 DF, 3X/DAY
     Route: 065
  6. INEXIUM [Concomitant]
     Dosage: 40 MG, 1X/DAY
     Route: 065
  7. SPECIAFOLDINE [Concomitant]
     Dosage: 5 MG, 1X/DAY
     Route: 065
  8. CACIT D3 [Concomitant]
     Dosage: 1 DF, 1X/DAY
     Route: 065
  9. A 313 [Concomitant]
     Dosage: 1 DF, EVERY 10 DAYS
     Route: 065
     Dates: end: 201303
  10. A 313 [Concomitant]
     Dosage: 1 DF, WEEKLY
     Route: 065
     Dates: start: 201303
  11. TOCO [Concomitant]
     Dosage: 1 DF, 1X/DAY
     Route: 065
  12. UVEDOSE [Concomitant]
     Dosage: 1 DF, WEEKLY
     Route: 065
  13. IXPRIM [Concomitant]
     Indication: NECK PAIN
     Dosage: UNK
     Route: 065

REACTIONS (7)
  - Renal failure acute [Recovered/Resolved]
  - Diarrhoea [Recovered/Resolved]
  - Diarrhoea [Recovered/Resolved]
  - Colitis microscopic [Unknown]
  - Benign small intestinal neoplasm [Unknown]
  - Renal failure acute [Recovered/Resolved]
  - Diarrhoea [Recovered/Resolved]
